FAERS Safety Report 16535860 (Version 2)
Quarter: 2019Q4

REPORT INFORMATION
  Report Type: Spontaneous
  Country: GB (occurrence: GB)
  Receive Date: 20190705
  Receipt Date: 20191212
  Transmission Date: 20200122
  Serious: Yes (Death, Life-Threatening, Hospitalization, Other)
  Sender: FDA-Public Use
  Company Number: GB-ACCORD-137178

PATIENT
  Age: 81 Year
  Sex: Female
  Weight: 45 kg

DRUGS (12)
  1. BRALTUS [Concomitant]
     Active Substance: TIOTROPIUM BROMIDE
     Dates: start: 201903
  2. OMEPRAZOLE. [Concomitant]
     Active Substance: OMEPRAZOLE
  3. APIXABAN [Suspect]
     Active Substance: APIXABAN
     Indication: TRANSIENT ISCHAEMIC ATTACK
     Route: 048
     Dates: end: 20190524
  4. ATORVASTATIN [Concomitant]
     Active Substance: ATORVASTATIN
     Route: 048
     Dates: start: 201811
  5. CLOPIDOGREL [Suspect]
     Active Substance: CLOPIDOGREL BISULFATE
     Indication: TRANSIENT ISCHAEMIC ATTACK
     Dosage: 14 DAY COURSE
     Route: 048
     Dates: end: 20190525
  6. DIGOXIN. [Concomitant]
     Active Substance: DIGOXIN
     Route: 048
     Dates: start: 201906
  7. ALENDRONATE SODIUM/ALENDRONIC ACID [Concomitant]
     Active Substance: ALENDRONATE SODIUM
     Route: 048
     Dates: start: 201906
  8. CARVEDILOL/CARVEDILOL HYDROCHLODRIDE [Concomitant]
     Active Substance: CARVEDILOL HYDROCHLORIDE
     Route: 048
     Dates: start: 201811
  9. ZOPICLONE [Concomitant]
     Active Substance: ZOPICLONE
     Dosage: AT NIGHT
     Route: 048
     Dates: start: 201903
  10. PARACETAMOL [Concomitant]
     Active Substance: ACETAMINOPHEN
     Route: 048
     Dates: start: 201902, end: 201903
  11. DUORESP SPIROMAX [Concomitant]
     Active Substance: BUDESONIDE\FORMOTEROL
     Dosage: 320/9
     Dates: start: 201903
  12. ADCAL-D3 [Concomitant]
     Active Substance: CALCIUM CARBONATE\CHOLECALCIFEROL
     Dosage: TT DAILY
     Route: 048
     Dates: start: 201906

REACTIONS (7)
  - Brain oedema [Unknown]
  - Hypoaesthesia [Unknown]
  - Cerebral ventricle dilatation [Unknown]
  - Hydrocephalus [Unknown]
  - Basal ganglia haemorrhage [Fatal]
  - Haemorrhage intracranial [Fatal]
  - Intracranial pressure increased [Unknown]

NARRATIVE: CASE EVENT DATE: 20190610
